FAERS Safety Report 10470144 (Version 1)
Quarter: 2014Q3

REPORT INFORMATION
  Report Type: Spontaneous
  Country: US (occurrence: None)
  Receive Date: 20140904
  Receipt Date: 20140904
  Transmission Date: 20150326
  Serious: No
  Sender: FDA-Public Use
  Company Number: 228818LEO

PATIENT
  Age: 53 Year
  Sex: Female

DRUGS (1)
  1. PICATO [Suspect]
     Active Substance: INGENOL MEBUTATE
     Indication: PRECANCEROUS CELLS PRESENT
     Dates: start: 20140710, end: 20140712

REACTIONS (9)
  - Application site erythema [None]
  - Application site swelling [None]
  - Insomnia [None]
  - Swelling face [None]
  - Eye swelling [None]
  - Application site pain [None]
  - Application site vesicles [None]
  - Sunburn [None]
  - Pruritus [None]

NARRATIVE: CASE EVENT DATE: 20140710
